FAERS Safety Report 18787895 (Version 1)
Quarter: 2021Q1

REPORT INFORMATION
  Report Type: Spontaneous
  Country: US (occurrence: US)
  Receive Date: 20210125
  Receipt Date: 20210125
  Transmission Date: 20210419
  Serious: No
  Sender: FDA-Public Use
  Company Number: US-ROCHE-2675668

PATIENT
  Age: 66 Year
  Sex: Male

DRUGS (2)
  1. RITUXAN [Suspect]
     Active Substance: RITUXIMAB
     Indication: ENCEPHALITIS
     Dosage: SDV 500 MG/50ML, OTHER, 1000 MG IV ON DAY 1 AND DAY 15, THEN 1000 MG EVERY 6 MONTHS; ONGOING: NOT RE
     Route: 042
     Dates: start: 202009
  2. RITUXAN [Suspect]
     Active Substance: RITUXIMAB
     Indication: ENCEPHALOMYELITIS

REACTIONS (3)
  - Intentional product use issue [Unknown]
  - No adverse event [Unknown]
  - Off label use [Unknown]

NARRATIVE: CASE EVENT DATE: 20200910
